FAERS Safety Report 18215194 (Version 1)
Quarter: 2020Q3

REPORT INFORMATION
  Report Type: Spontaneous
  Country: JP (occurrence: JP)
  Receive Date: 20200831
  Receipt Date: 20200831
  Transmission Date: 20201103
  Serious: Yes (Death, Other)
  Sender: FDA-Public Use
  Company Number: JP-BRISTOL-MYERS SQUIBB COMPANY-BMS-2018-120349

PATIENT
  Age: 67 Year
  Sex: Male

DRUGS (3)
  1. OPDIVO [Suspect]
     Active Substance: NIVOLUMAB
     Indication: METASTATIC RENAL CELL CARCINOMA
     Dosage: 156 MG
     Route: 041
     Dates: start: 20170310, end: 20170310
  2. OPDIVO [Suspect]
     Active Substance: NIVOLUMAB
     Dosage: 150 MG, Q2WK
     Route: 041
     Dates: start: 20170324
  3. OPDIVO [Suspect]
     Active Substance: NIVOLUMAB
     Dosage: 240 MILLIGRAM, Q2WK
     Route: 041
     Dates: start: 20181109

REACTIONS (3)
  - Visual acuity reduced [Not Recovered/Not Resolved]
  - Malignant neoplasm progression [Fatal]
  - Thyroid function test abnormal [Recovering/Resolving]

NARRATIVE: CASE EVENT DATE: 20170825
